FAERS Safety Report 21513994 (Version 1)
Quarter: 2022Q4

REPORT INFORMATION
  Report Type: Report from Study
  Country: PL (occurrence: PL)
  Receive Date: 20221027
  Receipt Date: 20221027
  Transmission Date: 20230113
  Serious: Yes (Other)
  Sender: FDA-Public Use
  Company Number: PL-GILEAD-2022-0602784

PATIENT
  Sex: Female

DRUGS (1)
  1. SACITUZUMAB GOVITECAN [Suspect]
     Active Substance: SACITUZUMAB GOVITECAN
     Indication: Triple negative breast cancer
     Route: 065

REACTIONS (1)
  - Disease progression [Not Recovered/Not Resolved]
